FAERS Safety Report 9169732 (Version 1)
Quarter: 2013Q1

REPORT INFORMATION
  Report Type: Spontaneous
  Country: FR (occurrence: FR)
  Receive Date: 20130318
  Receipt Date: 20130318
  Transmission Date: 20140127
  Serious: Yes (Disabling)
  Sender: FDA-Public Use
  Company Number: FR-009507513-1303FRA003965

PATIENT
  Age: 80 Year
  Sex: Female

DRUGS (3)
  1. NORSET [Suspect]
     Indication: DEPRESSION
     Dosage: 1 DF, QPM
     Route: 048
     Dates: start: 201211
  2. TERALITHE [Concomitant]
     Indication: AFFECTIVE DISORDER
  3. SEROPLEX [Concomitant]
     Indication: AFFECTIVE DISORDER

REACTIONS (1)
  - Lymphoedema [Not Recovered/Not Resolved]
